FAERS Safety Report 6524867-6 (Version None)
Quarter: 2009Q4

REPORT INFORMATION
  Report Type: 
  Country: None (occurrence: None)
  Receive Date: 20091228
  Receipt Date: 20091228
  Transmission Date: 20100525
  Serious: No
  Sender: FDA-Public Use
  Company Number: None

PATIENT
  Age: 69 Year
  Sex: Male
  Weight: 79.3795 kg

DRUGS (5)
  1. COLD REMEDY RAPID MELTS [Suspect]
     Dosage: QID - 5 DAYS
     Dates: start: 20091017, end: 20091022
  2. LIPITOR [Concomitant]
  3. ATENOLOL [Concomitant]
  4. PAXIL [Concomitant]
  5. ZEGERID [Concomitant]

REACTIONS (1)
  - DYSGEUSIA [None]
